FAERS Safety Report 8433159-X (Version None)
Quarter: 2012Q2

REPORT INFORMATION
  Report Type: 
  Country: None (occurrence: None)
  Receive Date: 20120613
  Receipt Date: 20120607
  Transmission Date: 20120825
  Serious: Yes (Hospitalization)
  Sender: FDA-Public Use
  Company Number: US-GLAXOSMITHKLINE-A0843954A

PATIENT
  Age: 75 Year
  Sex: Female
  Weight: 56.8 kg

DRUGS (4)
  1. AVANDIA [Suspect]
     Indication: TYPE 2 DIABETES MELLITUS
     Dosage: 2MG PER DAY
     Route: 048
     Dates: start: 20010104, end: 20060101
  2. LISINOPRIL [Concomitant]
  3. AVANDAMET [Suspect]
     Indication: TYPE 2 DIABETES MELLITUS
     Route: 048
     Dates: start: 20060101, end: 20080101
  4. GLIPIZIDE [Concomitant]

REACTIONS (2)
  - PARALYSIS [None]
  - ISCHAEMIC STROKE [None]
